FAERS Safety Report 18061502 (Version 1)
Quarter: 2020Q3

REPORT INFORMATION
  Report Type: Spontaneous
  Country: US (occurrence: US)
  Receive Date: 20200723
  Receipt Date: 20200723
  Transmission Date: 20201103
  Serious: No
  Sender: FDA-Public Use
  Company Number: US-AMGEN-USASP2020117182

PATIENT
  Age: 73 Year
  Sex: Female

DRUGS (3)
  1. PROLIA [Suspect]
     Active Substance: DENOSUMAB
     Indication: BREAST CANCER
     Dosage: 60 MILLIGRAM, Q6MO
     Route: 065
     Dates: start: 2016
  2. PROLIA [Suspect]
     Active Substance: DENOSUMAB
     Indication: BONE LOSS
  3. EXEMESTANE. [Concomitant]
     Active Substance: EXEMESTANE
     Indication: BREAST CANCER
     Dosage: UNK

REACTIONS (1)
  - Back pain [Not Recovered/Not Resolved]

NARRATIVE: CASE EVENT DATE: 2016
